FAERS Safety Report 8128968-0 (Version None)
Quarter: 2012Q1

REPORT INFORMATION
  Report Type: 
  Country: None (occurrence: None)
  Receive Date: 20120210
  Receipt Date: 20110709
  Transmission Date: 20120608
  Serious: No
  Sender: FDA-Public Use
  Company Number: US-BRISTOL-MYERS SQUIBB COMPANY-15882863

PATIENT
  Age: 50 Year
  Sex: Female
  Weight: 89 kg

DRUGS (1)
  1. ORENCIA [Suspect]
     Dosage: RECEIVED INFUSIONS IN APR2011, MAY2011, AND JUN2011
     Dates: start: 20110401

REACTIONS (1)
  - HEADACHE [None]
